FAERS Safety Report 5549536-0 (Version None)
Quarter: 2007Q4

REPORT INFORMATION
  Report Type: 
  Country: None (occurrence: None)
  Receive Date: 20071212
  Receipt Date: 20071205
  Transmission Date: 20080405
  Serious: Yes (Other)
  Sender: FDA-Public Use
  Company Number: PHRM2007FR02663

PATIENT
  Age: 61 Year
  Sex: Male

DRUGS (1)
  1. NEORAL [Suspect]
     Indication: HEART TRANSPLANT
     Dosage: UNK, TARGET BLOOD LEVEL 120-130 NG/ML
     Route: 048
     Dates: start: 19900101

REACTIONS (4)
  - GOUT [None]
  - HYPERURICAEMIA [None]
  - OSTEOARTHRITIS [None]
  - PHLEBITIS [None]
